FAERS Safety Report 19169592 (Version 1)
Quarter: 2021Q2

REPORT INFORMATION
  Report Type: Spontaneous
  Country: JP (occurrence: JP)
  Receive Date: 20210422
  Receipt Date: 20210422
  Transmission Date: 20210717
  Serious: Yes (Other)
  Sender: FDA-Public Use
  Company Number: JP-STRIDES ARCOLAB LIMITED-2021SP004648

PATIENT
  Age: 71 Year
  Sex: Female

DRUGS (3)
  1. PREDNISOLONE. [Suspect]
     Active Substance: PREDNISOLONE
     Dosage: 5 MILLIGRAM PER DAY, DOSE REDUCED
     Route: 048
  2. PREDNISOLONE. [Suspect]
     Active Substance: PREDNISOLONE
     Indication: FIBRILLARY GLOMERULONEPHRITIS
     Dosage: 1 MILLIGRAM/KILOGRAM PER DAY
     Route: 048
  3. AZATHIOPRINE. [Suspect]
     Active Substance: AZATHIOPRINE
     Indication: FIBRILLARY GLOMERULONEPHRITIS
     Dosage: UNK
     Route: 065

REACTIONS (2)
  - Bipolar I disorder [Recovered/Resolved]
  - Off label use [Unknown]
